FAERS Safety Report 23118314 (Version 2)
Quarter: 2023Q4

REPORT INFORMATION
  Report Type: Spontaneous
  Country: US (occurrence: US)
  Receive Date: 20231028
  Receipt Date: 20231207
  Transmission Date: 20240110
  Serious: Yes (Life-Threatening, Hospitalization, Other)
  Sender: FDA-Public Use
  Company Number: US-MACLEODS PHARMACEUTICALS US LTD-MAC2023043989

PATIENT

DRUGS (2)
  1. AMLODIPINE [Suspect]
     Active Substance: AMLODIPINE BESYLATE
     Indication: Product used for unknown indication
     Dosage: 60 DOSAGE FORM, SINGLE (300 MG)
     Route: 065
  2. LISINOPRIL [Suspect]
     Active Substance: LISINOPRIL
     Indication: Product used for unknown indication
     Dosage: 60 DOSAGE FORM, SINGLE, (40 MG TABLETS)
     Route: 065

REACTIONS (5)
  - Hyponatraemia [Recovered/Resolved]
  - Muscle twitching [Unknown]
  - Suicide attempt [Unknown]
  - Distributive shock [Recovered/Resolved]
  - Intentional overdose [Unknown]
